FAERS Safety Report 17599480 (Version 1)
Quarter: 2020Q1

REPORT INFORMATION
  Report Type: Spontaneous
  Country: ES (occurrence: ES)
  Receive Date: 20200330
  Receipt Date: 20200330
  Transmission Date: 20200409
  Serious: Yes (Other)
  Sender: FDA-Public Use
  Company Number: ES-MYLANLABS-2020M1032199

PATIENT
  Age: 43 Year
  Sex: Female

DRUGS (6)
  1. GEMCITABINE. [Suspect]
     Active Substance: GEMCITABINE
     Indication: INFLAMMATORY CARCINOMA OF THE BREAST
     Dosage: UNK
     Route: 065
  2. TAMOXIFEN [Suspect]
     Active Substance: TAMOXIFEN
     Indication: INFLAMMATORY CARCINOMA OF THE BREAST
     Dosage: UNK
     Route: 065
  3. LAPATINIB [Suspect]
     Active Substance: LAPATINIB
     Indication: INFLAMMATORY CARCINOMA OF THE BREAST
     Dosage: UNK
     Route: 065
     Dates: start: 201208, end: 201210
  4. HERCEPTIN [Suspect]
     Active Substance: TRASTUZUMAB
     Indication: INFLAMMATORY CARCINOMA OF THE BREAST
     Dosage: UNK
     Route: 065
  5. LAPATINIB [Suspect]
     Active Substance: LAPATINIB
     Dosage: UNK
     Route: 065
     Dates: start: 201212, end: 201306
  6. XELODA [Suspect]
     Active Substance: CAPECITABINE
     Indication: INFLAMMATORY CARCINOMA OF THE BREAST
     Dosage: UNK
     Route: 048
     Dates: start: 201208, end: 201210

REACTIONS (4)
  - Liver disorder [Unknown]
  - Metastases to central nervous system [Unknown]
  - Lung disorder [Unknown]
  - Drug tolerance [Unknown]
